FAERS Safety Report 8950993 (Version 1)
Quarter: 2012Q4

REPORT INFORMATION
  Report Type: Spontaneous
  Country: US (occurrence: None)
  Receive Date: 20121203
  Receipt Date: 20121203
  Transmission Date: 20130627
  Serious: No
  Sender: FDA-Public Use
  Company Number: None

PATIENT

DRUGS (3)
  1. HEPARIN [Suspect]
     Route: 042
  2. HEPARIN SODIUM [Suspect]
  3. HEPARIN SODIUM [Suspect]

REACTIONS (2)
  - Drug label confusion [None]
  - Intercepted drug administration error [None]
